FAERS Safety Report 17958523 (Version 3)
Quarter: 2020Q3

REPORT INFORMATION
  Report Type: Report from Study
  Country: BR (occurrence: BR)
  Receive Date: 20200629
  Receipt Date: 20200907
  Transmission Date: 20201103
  Serious: Yes (Other)
  Sender: FDA-Public Use
  Company Number: NVSC2020BR060310

PATIENT
  Age: 56 Year
  Sex: Female

DRUGS (6)
  1. KISQALI [Suspect]
     Active Substance: RIBOCICLIB
     Indication: BREAST CANCER FEMALE
     Dosage: UNK
     Route: 065
     Dates: start: 20200222
  2. KISQALI [Suspect]
     Active Substance: RIBOCICLIB
     Dosage: UNK(3 PACKAGES WERE USED)
     Route: 065
     Dates: start: 20200310
  3. TAMOXIFEN [Suspect]
     Active Substance: TAMOXIFEN
     Indication: PRODUCT USED FOR UNKNOWN INDICATION
     Dosage: UNK (STARTED MORE THAN 6 YEARS AGO)
     Route: 065
  4. FEMARA [Suspect]
     Active Substance: LETROZOLE
     Indication: BREAST CANCER
     Dosage: UNK
     Route: 065
     Dates: start: 20200220
  5. LETROZOLE. [Concomitant]
     Active Substance: LETROZOLE
     Indication: PRODUCT USED FOR UNKNOWN INDICATION
     Dosage: UNK (MAH: EUROFARMA)
     Route: 065
  6. KISQALI [Suspect]
     Active Substance: RIBOCICLIB
     Dosage: UNK (3 PACKAGES WERE USED)
     Route: 065
     Dates: start: 20200310

REACTIONS (11)
  - Decreased appetite [Unknown]
  - Metastases to liver [Not Recovered/Not Resolved]
  - Immunosuppression [Unknown]
  - Nausea [Not Recovered/Not Resolved]
  - Cancer pain [Recovering/Resolving]
  - Decreased immune responsiveness [Not Recovered/Not Resolved]
  - Eating disorder [Not Recovered/Not Resolved]
  - Vitamin D deficiency [Not Recovered/Not Resolved]
  - Leukocytosis [Recovering/Resolving]
  - Vomiting [Unknown]
  - Serum ferritin increased [Not Recovered/Not Resolved]

NARRATIVE: CASE EVENT DATE: 202002
